FAERS Safety Report 7244831-1 (Version None)
Quarter: 2011Q1

REPORT INFORMATION
  Report Type: 
  Country: None (occurrence: None)
  Receive Date: 20110126
  Receipt Date: 20110121
  Transmission Date: 20110831
  Serious: No
  Sender: FDA-Public Use
  Company Number: US-PFIZER INC-2011015555

PATIENT
  Sex: Male

DRUGS (7)
  1. TAMSULOSIN [Concomitant]
     Indication: POLLAKIURIA
     Dosage: 0.4 MG, 2X/DAY
  2. HYDROCHLOROTHIAZIDE [Concomitant]
     Indication: DIURETIC THERAPY
     Dosage: 25 MG, 1X/DAY
  3. ATENOLOL [Concomitant]
     Indication: HYPERTENSION
     Dosage: 25 MG, 1X/DAY
  4. LISINOPRIL [Concomitant]
     Dosage: 20 MG, 2X/DAY
  5. PROSCAR [Concomitant]
     Indication: PROSTATIC DISORDER
     Dosage: 5 MG, 1X/DAY
  6. ZOCOR [Concomitant]
     Indication: BLOOD CHOLESTEROL INCREASED
     Dosage: 40 MG, 1X/DAY
  7. VIAGRA [Suspect]
     Indication: ERECTILE DYSFUNCTION
     Dosage: UNK MG, UNK
     Route: 048

REACTIONS (4)
  - DRUG INEFFECTIVE [None]
  - LIBIDO DECREASED [None]
  - EJACULATION DISORDER [None]
  - ERECTILE DYSFUNCTION [None]
